FAERS Safety Report 26072069 (Version 1)
Quarter: 2025Q4

REPORT INFORMATION
  Report Type: Spontaneous
  Country: US (occurrence: None)
  Receive Date: 20251120
  Receipt Date: 20251120
  Transmission Date: 20260117
  Serious: No
  Sender: FDA-CTU
  Company Number: None

PATIENT
  Sex: Female

DRUGS (1)
  1. METRONIDAZOLE [Suspect]
     Active Substance: METRONIDAZOLE
     Dosage: FREQUENCY : TWICE A DAY;?
     Route: 048

REACTIONS (5)
  - Headache [None]
  - Asthenia [None]
  - Fatigue [None]
  - Confusional state [None]
  - Balance disorder [None]
